FAERS Safety Report 8046185-X (Version None)
Quarter: 2012Q1

REPORT INFORMATION
  Report Type: 
  Country: None (occurrence: None)
  Receive Date: 20120112
  Receipt Date: 20120112
  Transmission Date: 20120608
  Serious: Yes (Other)
  Sender: FDA-Public Use
  Company Number: None

PATIENT
  Age: 64 Year
  Sex: Male

DRUGS (6)
  1. CYANOCOBALAMIN [Concomitant]
  2. FINASTERIDE [Concomitant]
  3. REVLIMID [Suspect]
     Indication: MYELODYSPLASTIC SYNDROME
     Dosage: 5 MG DAILY X21D/28D ORALLY
     Route: 048
     Dates: start: 20110501, end: 20110601
  4. LISINOPRIL AND HYDROCHLOROTHIAZIDE [Concomitant]
  5. SIMVASTATIN [Concomitant]
  6. METFORMIN HCL [Concomitant]

REACTIONS (5)
  - MIDDLE INSOMNIA [None]
  - ANAEMIA [None]
  - PRURITUS [None]
  - LEUKOPENIA [None]
  - RASH [None]
